FAERS Safety Report 16090802 (Version 3)
Quarter: 2019Q2

REPORT INFORMATION
  Report Type: Report from Study
  Country: JP (occurrence: JP)
  Receive Date: 20190319
  Receipt Date: 20190619
  Transmission Date: 20190711
  Serious: Yes (Death)
  Sender: FDA-Public Use
  Company Number: JP-BEH-2019100570

PATIENT
  Age: 70 Year
  Sex: Male
  Weight: 87.3 kg

DRUGS (11)
  1. BERIPLEX P/N [Suspect]
     Active Substance: COAGULATION FACTOR IX HUMAN\COAGULATION FACTOR VII HUMAN\COAGULATION FACTOR X HUMAN\PROTEIN C\PROTEIN S HUMAN\PROTHROMBIN
     Indication: HAEMORRHAGE
     Dosage: 4000 IU, UNK
     Route: 042
     Dates: start: 20171129
  2. BERIPLEX P/N [Suspect]
     Active Substance: COAGULATION FACTOR IX HUMAN\COAGULATION FACTOR VII HUMAN\COAGULATION FACTOR X HUMAN\PROTEIN C\PROTEIN S HUMAN\PROTHROMBIN
     Dosage: UNK
     Route: 042
  3. BERIPLEX P/N [Suspect]
     Active Substance: COAGULATION FACTOR IX HUMAN\COAGULATION FACTOR VII HUMAN\COAGULATION FACTOR X HUMAN\PROTEIN C\PROTEIN S HUMAN\PROTHROMBIN
     Dosage: UNK
     Route: 042
  4. BAYASPIRIN [Concomitant]
     Active Substance: ASPIRIN
     Dosage: UNK
     Route: 048
     Dates: end: 20171128
  5. KAYTWO N [Concomitant]
     Active Substance: MENATETRENONE
     Indication: PROCOAGULANT THERAPY
     Dosage: 20 MG, UNK
     Route: 065
     Dates: start: 20171129, end: 20171129
  6. WARFARIN [Suspect]
     Active Substance: WARFARIN
     Indication: PROPHYLAXIS
  7. WARFARIN [Suspect]
     Active Substance: WARFARIN
     Indication: CEREBRAL ARTERY EMBOLISM
     Dosage: 3 MG, UNK
     Route: 048
     Dates: start: 20171108, end: 20171128
  8. GLACTIV [Concomitant]
     Active Substance: SITAGLIPTIN
     Dosage: UNK
     Route: 048
     Dates: end: 20171128
  9. NIFEDIPINE. [Concomitant]
     Active Substance: NIFEDIPINE
     Dosage: UNK
     Route: 048
     Dates: end: 20171128
  10. METGLUCO [Concomitant]
     Active Substance: METFORMIN HYDROCHLORIDE
     Dosage: UNK
     Route: 048
     Dates: end: 20171128
  11. HYDROCHLOROTHIAZIDE W/TELMISARTAN [Concomitant]
     Active Substance: HYDROCHLOROTHIAZIDE\TELMISARTAN
     Dosage: UNK
     Route: 048
     Dates: end: 20171128

REACTIONS (1)
  - Subdural haematoma [Fatal]

NARRATIVE: CASE EVENT DATE: 20171201
